FAERS Safety Report 11388336 (Version 1)
Quarter: 2015Q3

REPORT INFORMATION
  Report Type: Report from Study
  Country: NL (occurrence: NL)
  Receive Date: 20150817
  Receipt Date: 20150817
  Transmission Date: 20151125
  Serious: Yes (Hospitalization)
  Sender: FDA-Public Use
  Company Number: PHHY2015NL085134

PATIENT
  Age: 80 Year
  Sex: Female

DRUGS (2)
  1. ACETYLSALICYLIC ACID [Concomitant]
     Active Substance: ASPIRIN
     Indication: PRODUCT USED FOR UNKNOWN INDICATION
     Dosage: 80 OT, QD
     Route: 065
  2. SANDOSTATIN LAR DEPOT [Suspect]
     Active Substance: OCTREOTIDE ACETATE
     Indication: ACROMEGALY
     Dosage: 30 MG/2 ML, EVERY 4 WEEKS
     Route: 030

REACTIONS (2)
  - Adrenocortical insufficiency acute [Recovering/Resolving]
  - Cerebral haemorrhage [Unknown]

NARRATIVE: CASE EVENT DATE: 20150702
